FAERS Safety Report 22530338 (Version 1)
Quarter: 2023Q2

REPORT INFORMATION
  Report Type: Spontaneous
  Country: US (occurrence: US)
  Receive Date: 20230607
  Receipt Date: 20230607
  Transmission Date: 20230722
  Serious: No
  Sender: FDA-Public Use
  Company Number: US-002147023-NVSC2023US128132

PATIENT
  Age: 65 Year
  Sex: Male

DRUGS (1)
  1. LEQVIO [Suspect]
     Active Substance: INCLISIRAN SODIUM
     Indication: Low density lipoprotein
     Dosage: 284 MG, OTHER, 1ST DOSE. NEXT DOSE 3MOS, THEN EVERY 6 MOS
     Route: 058
     Dates: start: 20230301, end: 20230302

REACTIONS (2)
  - Myalgia [Unknown]
  - Muscle spasms [Unknown]
